FAERS Safety Report 25009917 (Version 3)
Quarter: 2025Q1

REPORT INFORMATION
  Report Type: Spontaneous
  Country: AR (occurrence: AR)
  Receive Date: 20250225
  Receipt Date: 20250325
  Transmission Date: 20250409
  Serious: Yes (Hospitalization, Other)
  Sender: GLAXOSMITHKLINE
  Company Number: AR-GSK-AR2024AMR133891

PATIENT

DRUGS (2)
  1. ZEJULA [Suspect]
     Active Substance: NIRAPARIB
     Indication: Product used for unknown indication
     Dates: end: 20241210
  2. ZEJULA [Suspect]
     Active Substance: NIRAPARIB
     Dosage: 100 MG, QD

REACTIONS (14)
  - Anaemia [Unknown]
  - Ovarian cancer stage IV [Unknown]
  - Metastases to peritoneum [Unknown]
  - Metastases to lymph nodes [Unknown]
  - Nasopharyngitis [Unknown]
  - Anxiety [Unknown]
  - Blood chloride increased [Unknown]
  - Carbohydrate antigen 125 increased [Recovering/Resolving]
  - Gastrointestinal wall thickening [Unknown]
  - Spondylitis [Unknown]
  - Lung opacity [Unknown]
  - Central venous catheterisation [Unknown]
  - Splenic lesion [Unknown]
  - Product use issue [Unknown]

NARRATIVE: CASE EVENT DATE: 20241021
